FAERS Safety Report 10880171 (Version 1)
Quarter: 2015Q1

REPORT INFORMATION
  Report Type: Spontaneous
  Country: US (occurrence: US)
  Receive Date: 20150302
  Receipt Date: 20150302
  Transmission Date: 20150721
  Serious: No
  Sender: FDA-Public Use
  Company Number: US-PFIZER INC-2015071226

PATIENT
  Sex: Female

DRUGS (1)
  1. ESTRING [Suspect]
     Active Substance: ESTRADIOL
     Dosage: 1 DF, EVERY 3 MONTHS
     Route: 067

REACTIONS (3)
  - Vulvovaginal erythema [Recovered/Resolved]
  - Product quality issue [Recovered/Resolved]
  - Vaginal discharge [Recovered/Resolved]
